FAERS Safety Report 4413419-X (Version None)
Quarter: 2004Q3

REPORT INFORMATION
  Report Type: 
  Country: None (occurrence: None)
  Receive Date: 20040728
  Receipt Date: 20040712
  Transmission Date: 20050211
  Serious: Yes (Hospitalization)
  Sender: FDA-Public Use
  Company Number: US-JNJFOC-20040606270

PATIENT
  Age: 79 Year
  Sex: Female

DRUGS (3)
  1. DURAGESIC [Suspect]
     Indication: PAIN
     Dosage: 25 UG/HR; 50 UG/HR, 1 IN 72 HOUR, TRANSDERMAL
     Route: 062
     Dates: start: 19990101, end: 20000101
  2. DURAGESIC [Suspect]
     Indication: PAIN
     Dosage: 25 UG/HR; 50 UG/HR, 1 IN 72 HOUR, TRANSDERMAL
     Route: 062
     Dates: start: 20000101
  3. ZOLOFT [Concomitant]

REACTIONS (7)
  - DIARRHOEA HAEMORRHAGIC [None]
  - DYSPNOEA [None]
  - GASTROINTESTINAL DISORDER [None]
  - HAEMATEMESIS [None]
  - HIATUS HERNIA [None]
  - NERVOUS SYSTEM DISORDER [None]
  - SPINAL COLUMN STENOSIS [None]
